FAERS Safety Report 6703976-2 (Version None)
Quarter: 2010Q2

REPORT INFORMATION
  Report Type: 
  Country: None (occurrence: None)
  Receive Date: 20100430
  Receipt Date: 20100419
  Transmission Date: 20101027
  Serious: Yes (Hospitalization, Disabling)
  Sender: FDA-Public Use
  Company Number: ES-BAYER-201022882GPV

PATIENT
  Age: 66 Year
  Sex: Male
  Weight: 78 kg

DRUGS (16)
  1. SORAFENIB [Suspect]
     Indication: COLORECTAL CANCER
     Dosage: TOTAL DAILY DOSE: 800 MG
     Route: 048
     Dates: start: 20100208, end: 20100304
  2. OXALIPLATIN [Suspect]
     Indication: COLORECTAL CANCER METASTATIC
     Dosage: 170
     Route: 042
     Dates: start: 20100208, end: 20100208
  3. OXALIPLATIN [Suspect]
     Dosage: 170
     Route: 042
     Dates: start: 20100222, end: 20100222
  4. OXALIPLATIN [Suspect]
     Dosage: 170
     Route: 042
     Dates: start: 20100308, end: 20100308
  5. OXALIPLATIN [Suspect]
     Dosage: 170
     Route: 042
     Dates: start: 20100322, end: 20100322
  6. LEUCOVAORIN [Suspect]
     Indication: COLORECTAL CANCER METASTATIC
     Dosage: 800
     Route: 042
     Dates: start: 20100308, end: 20100308
  7. LEUCOVAORIN [Suspect]
     Dosage: 800
     Route: 042
     Dates: start: 20100322, end: 20100322
  8. LEUCOVAORIN [Suspect]
     Dosage: 800
     Route: 042
     Dates: start: 20100208, end: 20100208
  9. LEUCOVAORIN [Suspect]
     Dosage: 800
     Route: 042
     Dates: start: 20100222, end: 20100222
  10. MFOLFOX 6-5-FU BOLUS [Suspect]
     Indication: COLORECTAL CANCER METASTATIC
     Dosage: 800
     Route: 040
     Dates: start: 20100222
  11. MFOLFOX 6-5-FU BOLUS [Suspect]
     Dosage: 800
     Route: 040
     Dates: start: 20100322
  12. MFOLFOX 6-5-FU BOLUS [Suspect]
     Dosage: 800
     Route: 040
     Dates: start: 20100308
  13. MFOLFOX 6-5-FU BOLUS [Suspect]
     Dosage: 800
     Route: 040
     Dates: start: 20100208
  14. OMEOPRAZO [Concomitant]
     Indication: PROPHYLAXIS
     Route: 048
     Dates: start: 20100113
  15. ONDANSETRON [Concomitant]
     Dates: start: 20100208
  16. DEXAMETHASONE [Concomitant]
     Dates: start: 20100208

REACTIONS (1)
  - INTESTINAL OBSTRUCTION [None]
